FAERS Safety Report 23993181 (Version 1)
Quarter: 2024Q2

REPORT INFORMATION
  Report Type: Spontaneous
  Country: US (occurrence: US)
  Receive Date: 20240620
  Receipt Date: 20240620
  Transmission Date: 20240716
  Serious: No
  Sender: FDA-Public Use
  Company Number: US-DRL-USA-LIT/USA/24/0008716

PATIENT
  Age: 66 Year
  Sex: Female

DRUGS (9)
  1. LIDOCAINE [Suspect]
     Active Substance: LIDOCAINE
     Indication: Skin ulcer
  2. cellulose/collagen [Concomitant]
     Indication: Skin ulcer
  3. cellulose/collagen/silver [Concomitant]
     Indication: Skin ulcer
  4. HONEY [Concomitant]
     Active Substance: HONEY
     Indication: Skin ulcer
  5. ASPIRIN [Concomitant]
     Active Substance: ASPIRIN
     Indication: Product used for unknown indication
  6. HALOBETASOL [Concomitant]
     Active Substance: HALOBETASOL
     Indication: Skin ulcer
  7. SILVER [Concomitant]
     Active Substance: SILVER
     Indication: Skin ulcer
     Dosage: HYDROGELS
  8. COLLAGENASE [Concomitant]
     Active Substance: COLLAGENASE CLOSTRIDIUM HISTOLYTICUM
     Indication: Skin ulcer
     Dosage: HYDROGELS
  9. Sem cell patch [Concomitant]
     Indication: Skin ulcer
     Dosage: PATCH

REACTIONS (1)
  - Drug ineffective for unapproved indication [Unknown]
